FAERS Safety Report 23135835 (Version 4)
Quarter: 2024Q2

REPORT INFORMATION
  Report Type: Spontaneous
  Country: US (occurrence: US)
  Receive Date: 20231101
  Receipt Date: 20240528
  Transmission Date: 20240716
  Serious: Yes (Hospitalization, Other)
  Sender: FDA-Public Use
  Company Number: US-BRISTOL-MYERS SQUIBB COMPANY-2023-154792

PATIENT
  Age: 72 Year
  Sex: Female

DRUGS (4)
  1. LENALIDOMIDE [Suspect]
     Active Substance: LENALIDOMIDE
     Indication: Plasma cell myeloma in remission
     Dosage: TAKE 1 CAPSULE BY MOUTH ONCE DAILY FOR 21 DAYS, THEN 1 WEEK OFF EVERY 28 DAYS
     Route: 048
  2. LENALIDOMIDE [Suspect]
     Active Substance: LENALIDOMIDE
     Dosage: QOD
     Route: 048
  3. LENALIDOMIDE [Suspect]
     Active Substance: LENALIDOMIDE
     Dosage: TAKE 1 CAPSULE BY MOUTH EVERY DAY
     Route: 048
     Dates: start: 20221115
  4. LENALIDOMIDE [Suspect]
     Active Substance: LENALIDOMIDE
     Dosage: TAKE 1 CAPSULE (5 MG TOTAL) BY MOUTH ONCE DAILY FOR 28 DAYS.  TAKE WHOLE WITH WATER. DO NOT BREAK, C
     Route: 048

REACTIONS (4)
  - Gastrointestinal disorder [Recovering/Resolving]
  - Treatment noncompliance [Unknown]
  - Neutropenia [Recovering/Resolving]
  - Fatigue [Recovering/Resolving]
